FAERS Safety Report 18585960 (Version 1)
Quarter: 2020Q4

REPORT INFORMATION
  Report Type: Spontaneous
  Country: US (occurrence: US)
  Receive Date: 20201203
  Receipt Date: 20201203
  Transmission Date: 20210114
  Serious: No
  Sender: FDA-Public Use
  Company Number: None

PATIENT
  Age: 71 Year
  Sex: Male
  Weight: 78 kg

DRUGS (19)
  1. LOSARTAN POTASSIUM. [Concomitant]
     Active Substance: LOSARTAN POTASSIUM
  2. PROMACTA [Suspect]
     Active Substance: ELTROMBOPAG OLAMINE
     Indication: IMMUNE THROMBOCYTOPENIA
     Route: 048
     Dates: start: 20201105
  3. BREO ELLIPTA [Concomitant]
     Active Substance: FLUTICASONE FUROATE\VILANTEROL TRIFENATATE
  4. FOSAMAX [Concomitant]
     Active Substance: ALENDRONATE SODIUM
  5. DOXYCYCLINE HYCLATE. [Concomitant]
     Active Substance: DOXYCYCLINE HYCLATE
  6. FOSAMAX [Concomitant]
     Active Substance: ALENDRONATE SODIUM
  7. INCRUSE ELLIPTA [Concomitant]
     Active Substance: UMECLIDINIUM BROMIDE
  8. NITROSTAT [Concomitant]
     Active Substance: NITROGLYCERIN
  9. NASONEX [Concomitant]
     Active Substance: MOMETASONE FUROATE
  10. POLYETHYLENE GLYCOL 3350. [Concomitant]
     Active Substance: POLYETHYLENE GLYCOL 3350
  11. OMEPRAZOLE. [Concomitant]
     Active Substance: OMEPRAZOLE
  12. OXYCODONE-ACETAMINOPHEN [Concomitant]
     Active Substance: ACETAMINOPHEN\OXYCODONE HYDROCHLORIDE
  13. POTASSIUM POWDER [Concomitant]
  14. ALLOPURINOL. [Concomitant]
     Active Substance: ALLOPURINOL
  15. LEVOTHYROXINE SODIUM. [Concomitant]
     Active Substance: LEVOTHYROXINE SODIUM
  16. LOVASTATIN. [Concomitant]
     Active Substance: LOVASTATIN
  17. CARVEDILOL. [Concomitant]
     Active Substance: CARVEDILOL
  18. CLONIDINE HCL [Concomitant]
     Active Substance: CLONIDINE HYDROCHLORIDE
  19. PREDNISONE. [Concomitant]
     Active Substance: PREDNISONE

REACTIONS (2)
  - Pulmonary congestion [None]
  - Fluid retention [None]

NARRATIVE: CASE EVENT DATE: 20201125
